FAERS Safety Report 5193725-4 (Version None)
Quarter: 2006Q4

REPORT INFORMATION
  Report Type: 
  Country: None (occurrence: None)
  Receive Date: 20061228
  Receipt Date: 20061221
  Transmission Date: 20070319
  Serious: Yes (Other)
  Sender: FDA-Public Use
  Company Number: US-GLAXOSMITHKLINE-A0632451A

PATIENT
  Age: 61 Year
  Sex: Female

DRUGS (4)
  1. AVANDARYL [Suspect]
     Indication: DIABETES MELLITUS NON-INSULIN-DEPENDENT
     Dosage: 1TAB TWICE PER DAY
     Route: 048
     Dates: start: 20061101
  2. DILANTIN [Suspect]
     Indication: CONVULSION
     Dosage: 100MG FOUR TIMES PER DAY
     Route: 048
  3. GLUCOPHAGE [Concomitant]
  4. ETHOSUXIMIDE [Concomitant]

REACTIONS (6)
  - ARTHRALGIA [None]
  - BLOOD GLUCOSE DECREASED [None]
  - CONVULSION [None]
  - DRUG INEFFECTIVE [None]
  - DRUG INTERACTION [None]
  - VISUAL DISTURBANCE [None]
